FAERS Safety Report 23544217 (Version 1)
Quarter: 2024Q1

REPORT INFORMATION
  Report Type: Spontaneous
  Country: AU (occurrence: None)
  Receive Date: 20240220
  Receipt Date: 20240220
  Transmission Date: 20240410
  Serious: Yes (Other)
  Sender: FDA-Public Use
  Company Number: 2024A040526

PATIENT
  Age: 40 Year
  Sex: Female

DRUGS (3)
  1. QUETIAPINE FUMARATE [Suspect]
     Active Substance: QUETIAPINE FUMARATE
     Indication: Anxiety
     Dosage: 200 MG-400 MG
     Dates: end: 2019
  2. QUETIAPINE FUMARATE [Suspect]
     Active Substance: QUETIAPINE FUMARATE
     Indication: Depression
     Dosage: 200 MG-400 MG
     Dates: end: 2019
  3. QUETIAPINE FUMARATE [Suspect]
     Active Substance: QUETIAPINE FUMARATE
     Indication: Obsessive-compulsive disorder
     Dosage: 200 MG-400 MG
     Dates: end: 2019

REACTIONS (3)
  - Type 2 diabetes mellitus [Unknown]
  - Malaise [Unknown]
  - Tremor [Unknown]
